FAERS Safety Report 6610751-6 (Version None)
Quarter: 2010Q1

REPORT INFORMATION
  Report Type: 
  Country: None (occurrence: None)
  Receive Date: 20100302
  Receipt Date: 20100222
  Transmission Date: 20100710
  Serious: Yes (Hospitalization)
  Sender: FDA-Public Use
  Company Number: B0626087A

PATIENT
  Sex: Male

DRUGS (6)
  1. AUGMENTIN '125' [Suspect]
     Indication: SINUSITIS
     Dosage: 2G PER DAY
     Route: 048
     Dates: start: 20090312, end: 20090314
  2. ACEDIUR [Concomitant]
     Indication: HYPERTENSION
     Dosage: .5TAB PER DAY
     Route: 048
  3. GLICONORM [Concomitant]
     Dosage: 3TAB PER DAY
     Route: 048
  4. SEREUPIN [Concomitant]
     Indication: DEPRESSION
     Dosage: 1TAB PER DAY
     Route: 048
  5. EFFEXOR [Concomitant]
     Indication: DEPRESSION
     Dosage: 1TAB PER DAY
     Route: 048
  6. TAVOR [Concomitant]
     Dosage: 2TAB PER DAY
     Route: 048

REACTIONS (2)
  - BRONCHOSPASM [None]
  - ERYTHEMA [None]
